FAERS Safety Report 24030668 (Version 1)
Quarter: 2024Q2

REPORT INFORMATION
  Report Type: Report from Study
  Country: CN (occurrence: CN)
  Receive Date: 20240628
  Receipt Date: 20240628
  Transmission Date: 20240716
  Serious: Yes (Hospitalization, Other)
  Sender: FDA-Public Use
  Company Number: CN-ELI_LILLY_AND_COMPANY-CN202406013766

PATIENT
  Age: 60 Year
  Sex: Male

DRUGS (4)
  1. CYRAMZA [Suspect]
     Active Substance: RAMUCIRUMAB
     Indication: Gastric cancer
     Dosage: UNK UNK, UNKNOWN
     Route: 041
     Dates: start: 20240507
  2. CYRAMZA [Suspect]
     Active Substance: RAMUCIRUMAB
     Dosage: UNK UNK, UNKNOWN
     Route: 041
     Dates: start: 20240528
  3. SINTILIMAB [Concomitant]
     Active Substance: SINTILIMAB
     Indication: Gastric cancer
     Dosage: UNK UNK, UNKNOWN
     Route: 041
     Dates: start: 20240507
  4. CADONILIMAB [Concomitant]
     Active Substance: CADONILIMAB
     Indication: Gastric cancer
     Dosage: UNK

REACTIONS (16)
  - Abdominal distension [Unknown]
  - Abdominal pain [Unknown]
  - Malignant neoplasm progression [Unknown]
  - Weight decreased [Unknown]
  - Scrotal oedema [Recovering/Resolving]
  - Vomiting [Unknown]
  - Pelvic fluid collection [Unknown]
  - Hypoproteinaemia [Unknown]
  - Dysuria [Unknown]
  - Prealbumin decreased [Unknown]
  - Carbohydrate antigen 19-9 increased [Unknown]
  - Blood gastrin increased [Unknown]
  - Carcinoembryonic antigen increased [Unknown]
  - Carbohydrate antigen 50 increased [Unknown]
  - Carbohydrate antigen 72-4 increased [Unknown]
  - Mental disorder [Unknown]

NARRATIVE: CASE EVENT DATE: 20240524
